FAERS Safety Report 6682514-7 (Version None)
Quarter: 2010Q2

REPORT INFORMATION
  Report Type: 
  Country: None (occurrence: None)
  Receive Date: 20100415
  Receipt Date: 20100409
  Transmission Date: 20101027
  Serious: Yes (Death)
  Sender: FDA-Public Use
  Company Number: US-BAYER-200924208GPV

PATIENT

DRUGS (2)
  1. SORAFENIB [Suspect]
     Indication: THYROID CANCER
     Route: 048
  2. SORAFENIB [Suspect]
     Route: 048

REACTIONS (7)
  - CARDIAC ARREST [None]
  - CLOSTRIDIUM DIFFICILE SEPSIS [None]
  - DISSEMINATED INTRAVASCULAR COAGULATION [None]
  - GASTROINTESTINAL NECROSIS [None]
  - HYPERKALAEMIA [None]
  - INTESTINAL HAEMORRHAGE [None]
  - RENAL FAILURE [None]
